FAERS Safety Report 17146150 (Version 1)
Quarter: 2019Q4

REPORT INFORMATION
  Report Type: Report from Study
  Country: CN (occurrence: CN)
  Receive Date: 20191212
  Receipt Date: 20191212
  Transmission Date: 20200122
  Serious: Yes (Other)
  Sender: FDA-Public Use
  Company Number: CN-JNJFOC-20191206553

PATIENT

DRUGS (1)
  1. SPORANOX [Suspect]
     Active Substance: ITRACONAZOLE
     Indication: PULMONARY MYCOSIS
     Dosage: ITRACONAZOLE INJECTION WAS DISSOLVED IN 50 ML OF 0.9% SODIUM CHLORIDE INJECTION
     Route: 041

REACTIONS (5)
  - Vomiting [Unknown]
  - Nausea [Unknown]
  - Ileus paralytic [Unknown]
  - Transaminases increased [Unknown]
  - Abdominal pain [Unknown]
